FAERS Safety Report 8344330-X (Version None)
Quarter: 2012Q2

REPORT INFORMATION
  Report Type: 
  Country: None (occurrence: None)
  Receive Date: 20120508
  Receipt Date: 20120504
  Transmission Date: 20120825
  Serious: Yes (Other)
  Sender: FDA-Public Use
  Company Number: CN-PFIZER INC-2012109264

PATIENT
  Sex: Female

DRUGS (1)
  1. ZYVOX [Suspect]
     Indication: ENDOCARDITIS
     Dosage: UNK

REACTIONS (2)
  - ENDOCARDITIS [None]
  - DISEASE RECURRENCE [None]
